FAERS Safety Report 8367265-5 (Version None)
Quarter: 2012Q2

REPORT INFORMATION
  Report Type: 
  Country: None (occurrence: None)
  Receive Date: 20120517
  Receipt Date: 20120510
  Transmission Date: 20120825
  Serious: No
  Sender: FDA-Public Use
  Company Number: US-ASTRAZENECA-2012SE30464

PATIENT
  Age: 62 Year
  Sex: Female

DRUGS (4)
  1. VITAMIN B-12 [Concomitant]
  2. NEXIUM [Suspect]
     Route: 048
  3. ALLOPURINOL [Concomitant]
  4. FUROSEMIDE [Concomitant]

REACTIONS (5)
  - INTENTIONAL DRUG MISUSE [None]
  - GASTROOESOPHAGEAL REFLUX DISEASE [None]
  - SLEEP DISORDER DUE TO GENERAL MEDICAL CONDITION, INSOMNIA TYPE [None]
  - PAIN [None]
  - GOUT [None]
